FAERS Safety Report 24600998 (Version 2)
Quarter: 2024Q4

REPORT INFORMATION
  Report Type: Report from Study
  Country: JP (occurrence: JP)
  Receive Date: 20241110
  Receipt Date: 20241226
  Transmission Date: 20250115
  Serious: Yes (Hospitalization)
  Sender: UCB
  Company Number: JP-UCBJ-CD202410811UCBPHAPROD

PATIENT
  Age: 29 Year
  Sex: Female

DRUGS (1)
  1. FINTEPLA [Suspect]
     Active Substance: FENFLURAMINE
     Indication: Lennox-Gastaut syndrome
     Dosage: 3 MILLILITER, ONCE DAILY (QD)
     Route: 048
     Dates: start: 20241011

REACTIONS (1)
  - Hypopnoea [Recovered/Resolved]

NARRATIVE: CASE EVENT DATE: 20241030
